FAERS Safety Report 20825419 (Version 1)
Quarter: 2022Q2

REPORT INFORMATION
  Report Type: Spontaneous
  Country: BR (occurrence: BR)
  Receive Date: 20220513
  Receipt Date: 20220513
  Transmission Date: 20220720
  Serious: Yes (Other)
  Sender: FDA-Public Use
  Company Number: BR-009507513-2205BRA002173

PATIENT
  Sex: Male
  Weight: 100 kg

DRUGS (4)
  1. TEMODAL [Suspect]
     Active Substance: TEMOZOLOMIDE
     Indication: Brain neoplasm malignant
     Dosage: 150 MG FROM MONDAY TO FRIDAY, FOR 4 WEEKS
     Route: 048
     Dates: start: 202202
  2. TEMODAL [Suspect]
     Active Substance: TEMOZOLOMIDE
     Dosage: 400 MG FROM MONDAY TO FRIDAY, FOR 4 WEEKS
     Route: 048
     Dates: start: 20220502
  3. KEPPRA [Concomitant]
     Active Substance: LEVETIRACETAM
     Dosage: 750 MG - 2 TABLETS DAILY
     Route: 048
  4. ESOMEPRAZOLE [Concomitant]
     Active Substance: ESOMEPRAZOLE
     Dosage: 40 MG, 1 TABLET DAILY
     Route: 048

REACTIONS (2)
  - Haematochezia [Unknown]
  - Diarrhoea [Unknown]

NARRATIVE: CASE EVENT DATE: 20220502
